FAERS Safety Report 9417342 (Version 1)
Quarter: 2013Q3

REPORT INFORMATION
  Report Type: Spontaneous
  Country: US (occurrence: US)
  Receive Date: 20130724
  Receipt Date: 20130724
  Transmission Date: 20140515
  Serious: No
  Sender: FDA-Public Use
  Company Number: US-MYLANLABS-2013S1008407

PATIENT
  Age: 41 Year
  Sex: Female
  Weight: 58.06 kg

DRUGS (6)
  1. BUPROPION HYDROCHLORIDE EXTENDED-RELEASE TABLETS USP (XL) [Suspect]
     Indication: DEPRESSION
     Route: 048
     Dates: start: 201210, end: 201212
  2. BUPROPION HYDROCHLORIDE EXTENDED-RELEASE TABLETS USP (XL) [Suspect]
     Indication: DEPRESSION
     Route: 048
     Dates: start: 201212
  3. LEXAPRO [Concomitant]
     Indication: DEPRESSION
     Dosage: TAKEN FOR YEARS
     Route: 048
  4. SINGULAIR [Concomitant]
     Indication: MULTIPLE ALLERGIES
     Dosage: HAS TAKEN FOR YEARS
     Route: 048
  5. XOLAIR [Concomitant]
     Indication: MULTIPLE ALLERGIES
     Dosage: HAS TAKEN FOR YEARS
  6. THYROID HORMONES [Concomitant]
     Indication: HYPOTHYROIDISM
     Dosage: T4/T3 THYROID MEDICATION 75UG/15UG
     Route: 048

REACTIONS (9)
  - Drug ineffective [Recovered/Resolved]
  - Depression [Recovered/Resolved]
  - Crying [Recovered/Resolved]
  - Feeling abnormal [Recovering/Resolving]
  - Headache [Recovered/Resolved]
  - Impaired driving ability [Recovered/Resolved]
  - Fatigue [Recovering/Resolving]
  - Hypersomnia [Recovered/Resolved]
  - Disturbance in attention [Recovered/Resolved]
